FAERS Safety Report 11132549 (Version 3)
Quarter: 2015Q2

REPORT INFORMATION
  Report Type: Report from Study
  Country: BE (occurrence: BE)
  Receive Date: 20150522
  Receipt Date: 20150623
  Transmission Date: 20150821
  Serious: Yes (Hospitalization, Other)
  Sender: FDA-Public Use
  Company Number: BE-CELGENE-013-C4047-13112199

PATIENT
  Age: 59 Year
  Sex: Female
  Weight: 81 kg

DRUGS (53)
  1. PARACETAMOL [Concomitant]
     Active Substance: ACETAMINOPHEN
     Route: 041
     Dates: start: 20131206, end: 20131218
  2. AMOXICILLIN. [Concomitant]
     Active Substance: AMOXICILLIN
     Indication: RESPIRATORY TRACT INFECTION
     Route: 048
     Dates: start: 20131025, end: 20131129
  3. FUROSEMIDE. [Concomitant]
     Active Substance: FUROSEMIDE
     Route: 041
     Dates: start: 20131212, end: 20131212
  4. FUROSEMIDE. [Concomitant]
     Active Substance: FUROSEMIDE
     Route: 041
     Dates: start: 20131211, end: 20131218
  5. GEL POLYVIDONE IODINE [Concomitant]
     Indication: FOLLICULITIS
     Route: 061
     Dates: start: 20131118, end: 20131209
  6. CC-4047 [Suspect]
     Active Substance: POMALIDOMIDE
     Route: 048
     Dates: start: 20131129, end: 20131206
  7. ALIZAPRIDE [Concomitant]
     Active Substance: ALIZAPRIDE
     Route: 041
     Dates: start: 20131115, end: 20131116
  8. PANTOPRAZOLE SODIUM. [Concomitant]
     Active Substance: PANTOPRAZOLE SODIUM
     Indication: PROPHYLAXIS
     Dosage: 40 MILLIGRAM
     Route: 048
  9. ENOXAPARINE [Concomitant]
     Active Substance: ENOXAPARIN
     Route: 058
     Dates: start: 20131025, end: 20131111
  10. FUROSEMIDE. [Concomitant]
     Active Substance: FUROSEMIDE
     Indication: TRANSFUSION
     Route: 041
     Dates: start: 20131025, end: 20131025
  11. FUROSEMIDE. [Concomitant]
     Active Substance: FUROSEMIDE
     Indication: CARDIOMEGALY
     Route: 041
     Dates: start: 20131208, end: 20131208
  12. UNGUENT HYDROCORTISONE + CHLORALHEXIDINE [Concomitant]
     Indication: ERYTHEMA
     Route: 061
     Dates: start: 20131118
  13. CC-4047 [Suspect]
     Active Substance: POMALIDOMIDE
     Route: 048
     Dates: end: 20131122
  14. DEXAMETHASONE. [Suspect]
     Active Substance: DEXAMETHASONE
     Indication: PLASMA CELL MYELOMA
     Route: 065
     Dates: start: 20131025, end: 20131108
  15. DEXAMETHASONE. [Suspect]
     Active Substance: DEXAMETHASONE
     Route: 065
     Dates: start: 20131220
  16. PARACETAMOL [Concomitant]
     Active Substance: ACETAMINOPHEN
     Indication: PAIN
     Route: 048
     Dates: start: 20130304
  17. FENTANYL. [Concomitant]
     Active Substance: FENTANYL
     Indication: PAIN
     Route: 061
     Dates: start: 20130809, end: 20131210
  18. ALIZAPRIDE [Concomitant]
     Active Substance: ALIZAPRIDE
     Route: 041
     Dates: start: 20131111, end: 20131115
  19. MORFIN [Concomitant]
     Active Substance: MORPHINE SULFATE
     Route: 062
     Dates: start: 20131211
  20. FUROSEMIDE. [Concomitant]
     Active Substance: FUROSEMIDE
     Route: 041
     Dates: start: 20131210, end: 20131211
  21. CEFTAZIDIM [Concomitant]
     Active Substance: CEFTAZIDIME
     Indication: FOLLICULITIS
     Route: 041
     Dates: start: 20131118, end: 20131122
  22. POTASSIUM [Concomitant]
     Active Substance: POTASSIUM
     Indication: HYPOKALAEMIA
     Route: 041
     Dates: start: 20131111, end: 20131111
  23. ALIZAPRIDE [Concomitant]
     Active Substance: ALIZAPRIDE
     Indication: NAUSEA
     Route: 048
  24. MORFIN [Concomitant]
     Active Substance: MORPHINE SULFATE
     Indication: PAIN
     Route: 048
     Dates: start: 20131207
  25. DEXAMETHASONE. [Suspect]
     Active Substance: DEXAMETHASONE
     Route: 065
     Dates: start: 20131129, end: 20131206
  26. MORFIN [Concomitant]
     Active Substance: MORPHINE SULFATE
     Route: 048
     Dates: start: 20131208, end: 20131210
  27. MORFIN [Concomitant]
     Active Substance: MORPHINE SULFATE
     Route: 048
     Dates: start: 20131211
  28. CALCIUM [Concomitant]
     Active Substance: CALCIUM
     Indication: PLASMA CELL MYELOMA
     Dosage: 1000-800 MG-UNITS
     Route: 048
  29. PEGFILGRASTIM [Concomitant]
     Active Substance: PEGFILGRASTIM
     Indication: NEUTROPHIL COUNT DECREASED
     Route: 058
     Dates: start: 20131108, end: 20131108
  30. POTASSIUM [Concomitant]
     Active Substance: POTASSIUM
     Route: 041
     Dates: start: 20131112, end: 20131113
  31. POTASSIUM [Concomitant]
     Active Substance: POTASSIUM
     Route: 041
     Dates: start: 20131207, end: 20131208
  32. ANTITHROMBOTIC AGENTS [Concomitant]
     Active Substance: UNSPECIFIED INGREDIENT
     Indication: PROPHYLAXIS
     Route: 065
  33. ENOXAPARINE [Concomitant]
     Active Substance: ENOXAPARIN
     Route: 058
     Dates: start: 20131121, end: 20131208
  34. AMOXICILLIN. [Concomitant]
     Active Substance: AMOXICILLIN
     Route: 048
     Dates: start: 20131025, end: 20131029
  35. PEGFILGRASTIM [Concomitant]
     Active Substance: PEGFILGRASTIM
     Route: 058
     Dates: start: 20131211, end: 20131211
  36. VANCOMYCINE [Concomitant]
     Active Substance: VANCOMYCIN
     Indication: FOLLICULITIS
     Route: 041
     Dates: start: 20131118, end: 20131120
  37. POTASSIUM [Concomitant]
     Active Substance: POTASSIUM
     Route: 041
     Dates: start: 20131112, end: 20131112
  38. POTASSIUM [Concomitant]
     Active Substance: POTASSIUM
     Route: 041
     Dates: start: 20131113, end: 20131115
  39. ZOLEDRONATE [Concomitant]
     Active Substance: ZOLEDRONIC ACID
     Indication: ADJUVANT THERAPY
     Route: 041
     Dates: start: 20130617
  40. MOVICOL [Concomitant]
     Active Substance: POLYETHYLENE GLYCOL 3350\POTASSIUM CHLORIDE\SODIUM BICARBONATE\SODIUM CHLORIDE
     Indication: CONSTIPATION
     Dosage: BAGS
     Route: 048
     Dates: start: 20130605
  41. MORFIN [Concomitant]
     Active Substance: MORPHINE SULFATE
     Indication: STERNAL FRACTURE
     Route: 062
     Dates: start: 20130809, end: 20131210
  42. ENOXAPARINE [Concomitant]
     Active Substance: ENOXAPARIN
     Route: 058
     Dates: start: 20131210
  43. PEGFILGRASTIM [Concomitant]
     Active Substance: PEGFILGRASTIM
     Route: 058
     Dates: start: 20131121, end: 20131121
  44. VANCOMYCINE [Concomitant]
     Active Substance: VANCOMYCIN
     Route: 041
     Dates: start: 20131121, end: 20131122
  45. POTASSIUM [Concomitant]
     Active Substance: POTASSIUM
     Route: 041
     Dates: start: 20131112, end: 20131112
  46. POTASSIUM [Concomitant]
     Active Substance: POTASSIUM
     Route: 041
     Dates: start: 20131208, end: 20131209
  47. CC-4047 [Suspect]
     Active Substance: POMALIDOMIDE
     Indication: PLASMA CELL MYELOMA
     Route: 048
     Dates: start: 20131025, end: 20131108
  48. CC-4047 [Suspect]
     Active Substance: POMALIDOMIDE
     Route: 048
     Dates: start: 20131220
  49. DEXAMETHASONE. [Suspect]
     Active Substance: DEXAMETHASONE
     Route: 065
     Dates: end: 20131122
  50. PARACETAMOL [Concomitant]
     Active Substance: ACETAMINOPHEN
     Indication: NEUTROPENIC SEPSIS
     Route: 041
     Dates: start: 20131112, end: 20131119
  51. ALIZAPRIDE [Concomitant]
     Active Substance: ALIZAPRIDE
     Route: 041
     Dates: start: 20131206, end: 20131207
  52. ENOXAPARINE [Concomitant]
     Active Substance: ENOXAPARIN
     Indication: THROMBOSIS PROPHYLAXIS
     Route: 058
     Dates: start: 20131112, end: 20131120
  53. TOBRADEX [Concomitant]
     Active Substance: DEXAMETHASONE\TOBRAMYCIN
     Indication: CONJUNCTIVITIS
     Route: 047
     Dates: start: 20131122, end: 20131126

REACTIONS (2)
  - Folliculitis [Recovering/Resolving]
  - Pneumonia [Recovered/Resolved]

NARRATIVE: CASE EVENT DATE: 20131111
